FAERS Safety Report 7035857-1 (Version None)
Quarter: 2010Q4

REPORT INFORMATION
  Report Type: 
  Country: None (occurrence: None)
  Receive Date: 20101008
  Receipt Date: 20101006
  Transmission Date: 20110411
  Serious: Yes (Other)
  Sender: FDA-Public Use
  Company Number: JP-EISAI INC.-E2090-01344-SPO-JP

PATIENT
  Age: 82 Year
  Sex: Male

DRUGS (4)
  1. EXCEGRAN [Suspect]
     Indication: POSTOPERATIVE CARE
     Dosage: UNKNOWN
     Route: 048
     Dates: start: 20100830, end: 20100930
  2. MEPTIN AIR [Concomitant]
  3. BROTIZOLAM [Concomitant]
  4. SINGULAIR [Concomitant]

REACTIONS (1)
  - DRUG RASH WITH EOSINOPHILIA AND SYSTEMIC SYMPTOMS [None]
